FAERS Safety Report 8192615-2 (Version None)
Quarter: 2012Q1

REPORT INFORMATION
  Report Type: 
  Country: None (occurrence: None)
  Receive Date: 20120308
  Receipt Date: 20120229
  Transmission Date: 20120608
  Serious: Yes (Other)
  Sender: FDA-Public Use
  Company Number: US-US-EMD SERONO, INC.-7116302

PATIENT
  Sex: Female

DRUGS (2)
  1. REBIF [Suspect]
     Indication: PRODUCT USED FOR UNKNOWN INDICATION
     Route: 058
     Dates: start: 20110627
  2. REBIF [Suspect]
     Route: 058
     Dates: start: 20120101

REACTIONS (4)
  - ABDOMINAL PAIN UPPER [None]
  - VITAMIN D DECREASED [None]
  - INJECTION SITE ERYTHEMA [None]
  - PLATELET COUNT DECREASED [None]
